FAERS Safety Report 7619225-7 (Version None)
Quarter: 2011Q3

REPORT INFORMATION
  Report Type: 
  Country: None (occurrence: None)
  Receive Date: 20110718
  Receipt Date: 20110712
  Transmission Date: 20111222
  Serious: Yes (Congenital Anomaly, Other)
  Sender: FDA-Public Use
  Company Number: US-GILEAD-2011-0039872

PATIENT
  Sex: Male
  Weight: 3.393 kg

DRUGS (4)
  1. RETROVIR [Concomitant]
     Indication: HIV INFECTION
     Dates: start: 20110209, end: 20110216
  2. VIREAD [Suspect]
     Indication: HIV INFECTION
     Dates: start: 20110217
  3. COMBIVIR [Concomitant]
     Indication: HIV INFECTION
     Dates: start: 20110217
  4. KALETRA [Concomitant]
     Indication: HIV INFECTION
     Dates: start: 20110217

REACTIONS (2)
  - POLYDACTYLY [None]
  - UMBILICAL HERNIA [None]
